FAERS Safety Report 5212695-3 (Version None)
Quarter: 2006Q4

REPORT INFORMATION
  Report Type: 
  Country: None (occurrence: None)
  Receive Date: 20061115
  Receipt Date: 20060627
  Transmission Date: 20070319
  Serious: No
  Sender: FDA-Public Use
  Company Number: 200612408BWH

PATIENT
  Age: 74 Year
  Sex: Male
  Weight: 69.4003 kg

DRUGS (7)
  1. NEXAVAR [Suspect]
     Indication: RENAL CELL CARCINOMA STAGE UNSPECIFIED
     Dosage: 400 MG, BID, ORAL
     Route: 048
     Dates: start: 20060124, end: 20060701
  2. WARFARIN SODIUM [Concomitant]
  3. FA-CYANCOBA-PYRIDOXINE [Concomitant]
  4. PEPCID AC [Concomitant]
  5. FERROUS SULFATE TAB [Concomitant]
  6. FENTANYL [Concomitant]
  7. OXYCODONE HCL [Concomitant]

REACTIONS (7)
  - BLOOD IRON DECREASED [None]
  - DECREASED APPETITE [None]
  - DIARRHOEA [None]
  - HYPOTRICHOSIS [None]
  - NAUSEA [None]
  - VOMITING [None]
  - WEIGHT DECREASED [None]
